FAERS Safety Report 8829220 (Version 1)
Quarter: 2012Q4

REPORT INFORMATION
  Report Type: 
  Country: NL (occurrence: NL)
  Receive Date: 20121009
  Receipt Date: 20121009
  Transmission Date: 20130627
  Serious: Yes (Other)
  Sender: FDA-Public Use
  Company Number: NL-AMGEN-NLDSP2012063477

PATIENT
  Sex: Male

DRUGS (9)
  1. ENBREL [Suspect]
     Indication: ANKYLOSING SPONDYLITIS
     Dosage: 25 mg, 2x/week
     Dates: start: 2006
  2. BUMETANIDE [Concomitant]
     Dosage: 2 mg, UNK
  3. FOSINOPRIL [Concomitant]
     Dosage: 20 mg, UNK
  4. AMLODIPINE [Concomitant]
     Dosage: UNK
  5. MERCK-METFORMIN [Concomitant]
     Dosage: 500 mg, UNK
  6. SPIRONOLACTONE [Concomitant]
     Dosage: UNK
  7. LIPITOR [Concomitant]
     Dosage: 20 mg, UNK
  8. NOVORAPID [Concomitant]
     Dosage: 14 DF, UNK
  9. ASCAL                              /00002702/ [Concomitant]
     Dosage: UNK

REACTIONS (2)
  - Renal impairment [Not Recovered/Not Resolved]
  - Protein urine [Not Recovered/Not Resolved]
